FAERS Safety Report 5258190-7 (Version None)
Quarter: 2007Q1

REPORT INFORMATION
  Report Type: 
  Country: None (occurrence: None)
  Receive Date: 20070307
  Receipt Date: 20070226
  Transmission Date: 20070707
  Serious: Yes (Other)
  Sender: FDA-Public Use
  Company Number: PT-ABBOTT-07P-130-0360310-00

PATIENT
  Sex: Female
  Weight: 62 kg

DRUGS (1)
  1. KLACID OD [Suspect]
     Indication: UPPER RESPIRATORY TRACT INFECTION
     Route: 048
     Dates: start: 20070120, end: 20070126

REACTIONS (2)
  - FACE OEDEMA [None]
  - RASH PAPULAR [None]
